FAERS Safety Report 24297355 (Version 1)
Quarter: 2024Q3

REPORT INFORMATION
  Report Type: Spontaneous
  Country: UY (occurrence: UY)
  Receive Date: 20240909
  Receipt Date: 20240909
  Transmission Date: 20241017
  Serious: Yes (Other)
  Sender: ALKEM
  Company Number: None

PATIENT
  Age: 50 Year
  Sex: Male

DRUGS (12)
  1. TACROLIMUS [Suspect]
     Active Substance: TACROLIMUS
     Indication: Immunosuppressant drug therapy
     Dosage: UNK
     Route: 065
  2. MYCOPHENOLATE MOFETIL [Interacting]
     Active Substance: MYCOPHENOLATE MOFETIL
     Indication: Immunosuppressant drug therapy
     Dosage: 1 GRAM, BID (EVERY 12 HOUR) DAY 1, 9, 16, 23, 30, 37, 44, 52,55
     Route: 065
  3. PREGABALIN [Suspect]
     Active Substance: PREGABALIN
     Indication: Neuralgia
     Dosage: UNK
     Route: 065
  4. CYCLOSPORINE [Interacting]
     Active Substance: CYCLOSPORINE
     Indication: Immunosuppressant drug therapy
     Dosage: 125 MILLIGRAM, QD
     Route: 065
  5. CYCLOSPORINE [Interacting]
     Active Substance: CYCLOSPORINE
     Dosage: 100 MILLIGRAM, BID (DAY 23, 30, 37, 44, 52, 55)
     Route: 065
  6. CANNABIDIOL [Interacting]
     Active Substance: CANNABIDIOL
     Indication: Pain management
     Dosage: 0.6 MILLIGRAM/KILOGRAM, BID QD (DIVIDED TWICE DAILY) DAY 1
     Route: 048
  7. CANNABIDIOL [Interacting]
     Active Substance: CANNABIDIOL
     Dosage: 1.2 MILLIGRAM/KILOGRAM, BID (DIVIDED TWICE DAILY), DAY 9
     Route: 048
  8. CANNABIDIOL [Interacting]
     Active Substance: CANNABIDIOL
     Dosage: 1.6 MILLIGRAM/KILOGRAM, BID (DIVIDED TWICE DAILY), DAY 16, 23, 30, 37, 44, 52, 55)
     Route: 060
  9. PREDNISONE [Concomitant]
     Active Substance: PREDNISONE
     Indication: Immunosuppressant drug therapy
     Dosage: 5 MILLIGRAM, QD
     Route: 065
  10. GABAPENTIN [Concomitant]
     Active Substance: GABAPENTIN
     Indication: Neuralgia
     Dosage: 1200 MG/DAY
     Route: 065
  11. GABAPENTIN [Concomitant]
     Active Substance: GABAPENTIN
     Dosage: 2400 MG/DAY (INCREASED)
     Route: 065
  12. GABAPENTIN [Concomitant]
     Active Substance: GABAPENTIN
     Dosage: UNK, QD
     Route: 065

REACTIONS (5)
  - Neurotoxicity [Unknown]
  - Drug level decreased [Recovered/Resolved]
  - Neuralgia [Unknown]
  - Drug interaction [Unknown]
  - Drug ineffective [Unknown]

NARRATIVE: CASE EVENT DATE: 20180101
